FAERS Safety Report 23438463 (Version 1)
Quarter: 2024Q1

REPORT INFORMATION
  Report Type: Spontaneous
  Country: US (occurrence: None)
  Receive Date: 20240124
  Receipt Date: 20240124
  Transmission Date: 20240410
  Serious: Yes (Hospitalization)
  Sender: FDA-Public Use
  Company Number: None

PATIENT
  Age: 69 Year
  Sex: Female
  Weight: 53.5 kg

DRUGS (2)
  1. CARBOPLATIN [Suspect]
     Active Substance: CARBOPLATIN
     Dates: end: 20220622
  2. TAXOL [Concomitant]
     Active Substance: PACLITAXEL
     Dates: end: 20220622

REACTIONS (5)
  - Splenic rupture [None]
  - Hypotension [None]
  - Haemoglobin decreased [None]
  - Splenic haemorrhage [None]
  - Thrombosis [None]

NARRATIVE: CASE EVENT DATE: 20220816
